FAERS Safety Report 4353672-4 (Version None)
Quarter: 2004Q2

REPORT INFORMATION
  Report Type: 
  Country: None (occurrence: None)
  Receive Date: 20040430
  Receipt Date: 20040414
  Transmission Date: 20050107
  Serious: Yes (Life-Threatening, Disabling)
  Sender: FDA-Public Use
  Company Number: 2004IM000564

PATIENT
  Age: 39 Year
  Sex: Female
  Weight: 54 kg

DRUGS (2)
  1. ADVAFERON (A643_INTERFERON ALFACON-1) [Suspect]
     Indication: HEPATITIS C
     Dosage: 12 MU; INTRAMUSCULAR
     Route: 030
     Dates: start: 20030903, end: 20031010
  2. INTRON A [Suspect]
     Indication: HEPATITIS C
     Dosage: 3 MU; TIW; INTRAMUSCULAR
     Route: 030
     Dates: start: 20030319, end: 20040216

REACTIONS (9)
  - ANOREXIA [None]
  - DIABETES MELLITUS INSULIN-DEPENDENT [None]
  - DIABETIC KETOACIDOSIS [None]
  - KETONURIA [None]
  - MALAISE [None]
  - NASOPHARYNGITIS [None]
  - PLATELET COUNT DECREASED [None]
  - VOMITING [None]
  - WEIGHT DECREASED [None]
